FAERS Safety Report 8467798-7 (Version None)
Quarter: 2012Q2

REPORT INFORMATION
  Report Type: 
  Country: None (occurrence: None)
  Receive Date: 20120626
  Receipt Date: 20120622
  Transmission Date: 20120825
  Serious: Yes (Hospitalization, Other)
  Sender: FDA-Public Use
  Company Number: BR-ROCHE-773587

PATIENT
  Sex: Female
  Weight: 62 kg

DRUGS (9)
  1. MABTHERA [Suspect]
     Indication: PRODUCT USED FOR UNKNOWN INDICATION
     Route: 042
     Dates: start: 20101101, end: 20101201
  2. MABTHERA [Suspect]
  3. DIPYRONE TAB [Concomitant]
     Indication: PAIN
  4. FLUOXETINE [Concomitant]
  5. CALCIUM CARBONATE [Concomitant]
  6. OMEPRAZOLE [Concomitant]
  7. SIROLIMUS [Concomitant]
  8. PREDNISONE [Concomitant]
     Dosage: DOSE: 5MG, FREQUENCY: 1.5MG/DAY
  9. AMITRIPTYLINE HCL [Concomitant]

REACTIONS (12)
  - SENSORY DISTURBANCE [None]
  - LUNG INFECTION [None]
  - NASOPHARYNGITIS [None]
  - ARTHROPATHY [None]
  - HYPERSENSITIVITY [None]
  - HYPERTENSION [None]
  - OSTEOARTHRITIS [None]
  - INSOMNIA [None]
  - KIDNEY INFECTION [None]
  - PAIN [None]
  - GAIT DISTURBANCE [None]
  - ILL-DEFINED DISORDER [None]
